FAERS Safety Report 8507717-8 (Version None)
Quarter: 2012Q2

REPORT INFORMATION
  Report Type: 
  Country: None (occurrence: None)
  Receive Date: 20120405
  Receipt Date: 20090806
  Transmission Date: 20120825
  Serious: Yes (Other)
  Sender: FDA-Public Use
  Company Number: PHEH2009US08921

PATIENT
  Sex: Female

DRUGS (13)
  1. CITRACEL (CALCIUM CITRATE) [Concomitant]
  2. RECLAST [Suspect]
     Dosage: UNK , INTRAVENOUS
     Route: 042
     Dates: start: 20090720
  3. MICARDIS [Concomitant]
  4. FIORICET (BUTALBUTAL, CAFFEINE, PARACETAMOL) [Concomitant]
  5. VITAMIN D3 (COLECALIFEROL) [Concomitant]
  6. ALLEGRA-D (FEXOFENADINE HYDROCHLORIDE,PSEUDOEPHEDRINE) [Concomitant]
  7. MULTIVITAMINS (ASCORBIC ACID, ERGOCALCIFEROL, FOLIC ACID, NICOTINAMIDE [Concomitant]
  8. CORGARD [Concomitant]
  9. LONOX (ATROPINE SULFATGE, DIPHENOXYLATE HYDROCHLORIDE) [Concomitant]
  10. ZYRTEC [Concomitant]
  11. PENTASA [Concomitant]
  12. ZOLOFT [Concomitant]
  13. NYSTATIN [Concomitant]

REACTIONS (2)
  - ARTHRALGIA [None]
  - ABASIA [None]
